FAERS Safety Report 7829958-5 (Version None)
Quarter: 2011Q4

REPORT INFORMATION
  Report Type: 
  Country: None (occurrence: None)
  Receive Date: 20111021
  Receipt Date: 20111001
  Transmission Date: 20120403
  Serious: Yes (Hospitalization)
  Sender: FDA-Public Use
  Company Number: US-BAYER-2011-021760

PATIENT
  Age: 39 Year
  Sex: Female
  Weight: 70.295 kg

DRUGS (5)
  1. LORTAB [Concomitant]
     Dosage: 7.5 MG, PRN
     Route: 048
     Dates: start: 20100124
  2. GARLIC TABLETS [Concomitant]
     Dosage: UNK UNK, QD
     Dates: start: 20091101
  3. YAZ [Suspect]
     Dosage: UNK
     Dates: start: 20090601, end: 20100101
  4. SINGULAIR [Concomitant]
     Dosage: 10 MG, QD
     Route: 048
     Dates: start: 20100124
  5. PHENERGAN HCL [Concomitant]
     Dosage: 25 MG, PRN
     Route: 048
     Dates: start: 20100124

REACTIONS (3)
  - INJURY [None]
  - CHOLECYSTECTOMY [None]
  - CHOLELITHIASIS [None]
